FAERS Safety Report 5870490-6 (Version None)
Quarter: 2008Q3

REPORT INFORMATION
  Report Type: 
  Country: None (occurrence: None)
  Receive Date: 20080829
  Receipt Date: 20080502
  Transmission Date: 20090109
  Serious: Yes (Hospitalization)
  Sender: FDA-Public Use
  Company Number: US023505

PATIENT
  Age: 42 Year
  Sex: Female

DRUGS (12)
  1. FENTORA [Suspect]
     Indication: PAIN
     Dosage: 200 UG BUCCAL
     Route: 002
     Dates: start: 20061027, end: 20061221
  2. FENTORA [Suspect]
     Indication: PAIN
     Dosage: 400 UG BUCCAL
     Route: 002
     Dates: start: 20061221, end: 20070320
  3. XANAX [Suspect]
     Dosage: 2 MG TID ORAL
     Route: 048
  4. XANAX [Suspect]
     Dosage: 4 MG QID ORAL
     Route: 048
     Dates: end: 20070320
  5. XANAX [Suspect]
     Dosage: ORAL
     Route: 048
     Dates: start: 20050711, end: 20060701
  6. XANAX [Suspect]
     Dosage: ORAL
     Route: 048
     Dates: start: 20060925
  7. DILAUDID [Suspect]
     Indication: PAIN
     Dosage: 2 MG Q4HR ORAL
     Route: 048
  8. DILAUDID [Suspect]
     Indication: PAIN
     Dosage: PRN ORAL
     Route: 048
     Dates: end: 20070301
  9. AMBIEN [Suspect]
     Indication: PAIN
     Dosage: 12.5 MG QHS ORAL
     Route: 048
     Dates: end: 20070319
  10. DEMEROL [Suspect]
     Indication: PAIN
     Dosage: 50 MG EVERY 6 HOURS AS NEEDED ORAL
     Route: 048
     Dates: end: 20070301
  11. CYMBALTA [Concomitant]
  12. ZANAFLEX [Concomitant]

REACTIONS (9)
  - APPETITE DISORDER [None]
  - DRUG PRESCRIBING ERROR [None]
  - DRUG WITHDRAWAL SYNDROME [None]
  - EMOTIONAL DISTRESS [None]
  - NAUSEA [None]
  - PANIC ATTACK [None]
  - SLEEP DISORDER [None]
  - SUBSTANCE ABUSE [None]
  - TREMOR [None]
